FAERS Safety Report 6489087-2 (Version None)
Quarter: 2009Q4

REPORT INFORMATION
  Report Type: 
  Country: None (occurrence: None)
  Receive Date: 20091210
  Receipt Date: 20091209
  Transmission Date: 20100525
  Serious: Yes (Other)
  Sender: FDA-Public Use
  Company Number: US-PFIZER INC-2009291682

PATIENT
  Sex: Male

DRUGS (3)
  1. XALATAN [Suspect]
     Indication: INTRAOCULAR PRESSURE TEST
     Dosage: 1 DROP  IN BOTH EYES DAILY
     Route: 047
  2. LOTREL [Concomitant]
     Indication: BLOOD PRESSURE
     Dosage: UNK
  3. VITAMINS [Concomitant]
     Dosage: UNK

REACTIONS (2)
  - BLOOD PRESSURE INCREASED [None]
  - INTRAOCULAR PRESSURE INCREASED [None]
